FAERS Safety Report 6382196-8 (Version None)
Quarter: 2009Q3

REPORT INFORMATION
  Report Type: 
  Country: None (occurrence: None)
  Receive Date: 20090930
  Receipt Date: 20090924
  Transmission Date: 20100115
  Serious: Yes (Hospitalization)
  Sender: FDA-Public Use
  Company Number: FR-BRISTOL-MYERS SQUIBB COMPANY-14793632

PATIENT
  Age: 96 Year
  Sex: Male

DRUGS (6)
  1. FOZITEC TABS [Suspect]
     Dosage: 1DF FROM UNK-5AUG09 1/2TAB FROM 05AUG09-07AUG09
     Route: 048
     Dates: end: 20090807
  2. TEGRETOL [Suspect]
     Dosage: FORMULATION: TABS
     Route: 048
     Dates: end: 20090804
  3. PROSCAR [Concomitant]
  4. STILNOX [Concomitant]
  5. EFFERALGAN [Concomitant]
  6. KARDEGIC [Concomitant]

REACTIONS (5)
  - CONFUSIONAL STATE [None]
  - FALL [None]
  - HEAD INJURY [None]
  - HYPONATRAEMIA [None]
  - RHABDOMYOLYSIS [None]
